FAERS Safety Report 20152405 (Version 1)
Quarter: 2021Q4

REPORT INFORMATION
  Report Type: Spontaneous
  Country: AR (occurrence: AR)
  Receive Date: 20211206
  Receipt Date: 20211206
  Transmission Date: 20220303
  Serious: Yes (Other)
  Sender: FDA-Public Use
  Company Number: AR-PFIZER INC-202101646768

PATIENT
  Age: 63 Year
  Sex: Female

DRUGS (1)
  1. XELJANZ XR [Suspect]
     Active Substance: TOFACITINIB CITRATE
     Indication: Rheumatoid arthritis
     Dosage: 11 MG, DAILY
     Dates: start: 20190420

REACTIONS (5)
  - Cataract [Recovered/Resolved]
  - Pharyngitis [Recovered/Resolved]
  - Pain in extremity [Recovered/Resolved]
  - Hypermetropia [Unknown]
  - Dry eye [Unknown]

NARRATIVE: CASE EVENT DATE: 20210819
